APPROVED DRUG PRODUCT: IBUPROFEN
Active Ingredient: IBUPROFEN
Strength: 100MG/5ML
Dosage Form/Route: SUSPENSION;ORAL
Application: A074916 | Product #001
Applicant: P AND L DEVELOPMENT LLC
Approved: Apr 30, 1999 | RLD: No | RS: No | Type: OTC